FAERS Safety Report 5063256-0 (Version None)
Quarter: 2006Q3

REPORT INFORMATION
  Report Type: 
  Country: None (occurrence: None)
  Receive Date: 20060724
  Receipt Date: 20060724
  Transmission Date: 20061208
  Serious: Yes (Disabling)
  Sender: FDA-Public Use
  Company Number: None

PATIENT
  Age: 46 Year
  Sex: Female
  Weight: 68.0396 kg

DRUGS (1)
  1. LISTERINE WHITENING PFIZER CONSUMER HEALTHCARE [Suspect]
     Indication: DENTAL CARE
     Dosage: 1 CAPSFULL EVERYDAY PO [TWICE A DAY]
     Route: 048
     Dates: start: 20060518, end: 20060720

REACTIONS (3)
  - RASH [None]
  - RASH PAPULAR [None]
  - SKIN DISCOLOURATION [None]
